FAERS Safety Report 5704968-2 (Version None)
Quarter: 2008Q2

REPORT INFORMATION
  Report Type: 
  Country: None (occurrence: None)
  Receive Date: 20080414
  Receipt Date: 20080317
  Transmission Date: 20081010
  Serious: No
  Sender: FDA-Public Use
  Company Number: US-BOEHRINGER INGELHEIM GMBH, GERMANY-2008-BP-04021BP

PATIENT
  Sex: Male

DRUGS (4)
  1. FLOMAX [Suspect]
     Indication: BENIGN PROSTATIC HYPERPLASIA
     Route: 048
     Dates: start: 20071101
  2. ARICEPT [Concomitant]
     Indication: DEMENTIA ALZHEIMER'S TYPE
  3. NAMENDA [Concomitant]
     Indication: DEMENTIA ALZHEIMER'S TYPE
  4. IBUPROFEN [Concomitant]
     Indication: ARTHRALGIA

REACTIONS (1)
  - THERAPEUTIC RESPONSE DECREASED [None]
